FAERS Safety Report 5677050-0 (Version None)
Quarter: 2008Q1

REPORT INFORMATION
  Report Type: 
  Country: None (occurrence: None)
  Receive Date: 20080324
  Receipt Date: 20080312
  Transmission Date: 20080703
  Serious: Yes (Hospitalization, Other)
  Sender: FDA-Public Use
  Company Number: FR-WYE-G01238508

PATIENT
  Age: 30 Year
  Sex: Female

DRUGS (4)
  1. EFFEXOR [Suspect]
     Indication: POSTPARTUM DEPRESSION
     Dosage: 75 MG TOTAL DAILY
     Route: 048
     Dates: start: 20070801, end: 20080101
  2. EFFEXOR [Suspect]
     Route: 048
     Dates: start: 20080101, end: 20080201
  3. MYOLASTAN [Suspect]
     Indication: NASOPHARYNGITIS
     Dosage: UNKNOWN
     Route: 048
     Dates: start: 20080201
  4. ORELOX [Suspect]
     Indication: NASOPHARYNGITIS
     Dosage: UNKNOWN
     Route: 048
     Dates: start: 20080201

REACTIONS (9)
  - CONFUSIONAL STATE [None]
  - DIPLOPIA [None]
  - DRUG WITHDRAWAL SYNDROME [None]
  - HEADACHE [None]
  - LOSS OF CONSCIOUSNESS [None]
  - MALAISE [None]
  - NASOPHARYNGITIS [None]
  - VISUAL FIELD DEFECT [None]
  - VOMITING [None]
